FAERS Safety Report 9973346 (Version 1)
Quarter: 2014Q1

REPORT INFORMATION
  Report Type: Spontaneous
  Country: US (occurrence: US)
  Receive Date: 20140306
  Receipt Date: 20140306
  Transmission Date: 20141002
  Serious: Yes (Other)
  Sender: FDA-Public Use
  Company Number: US-BRISTOL-MYERS SQUIBB COMPANY-20327185

PATIENT
  Age: 33 Year
  Sex: Female

DRUGS (8)
  1. ABILIFY [Suspect]
     Indication: GENERALISED ANXIETY DISORDER
     Dosage: STARTED AT 2.5MG INC TO 5MG?RESTARTED IN DEC 13
  2. ABILIFY [Suspect]
     Indication: DEPRESSION
     Dosage: STARTED AT 2.5MG INC TO 5MG?RESTARTED IN DEC 13
  3. ABILIFY [Suspect]
     Indication: POST-TRAUMATIC STRESS DISORDER
     Dosage: STARTED AT 2.5MG INC TO 5MG?RESTARTED IN DEC 13
  4. CELEXA [Suspect]
     Dosage: RESTART DEC 13?ALSO 40MG
  5. GEODON [Concomitant]
  6. KLONOPIN [Concomitant]
     Indication: PANIC ATTACK
     Dosage: ALSO 0.5MG BID
  7. ZOLPIDEM TARTRATE [Concomitant]
     Indication: SOMNOLENCE
     Dosage: ALSO 10 MG?RED TO 2MG AND THEN 0.5MG, ALL WITHIN 3 WKS
  8. NEURONTIN [Concomitant]

REACTIONS (5)
  - Road traffic accident [Unknown]
  - Foot fracture [Unknown]
  - Anger [Unknown]
  - Irritability [Unknown]
  - Drug dose omission [Unknown]
